FAERS Safety Report 26187531 (Version 1)
Quarter: 2025Q4

REPORT INFORMATION
  Report Type: Spontaneous
  Country: US (occurrence: US)
  Receive Date: 20251222
  Receipt Date: 20251222
  Transmission Date: 20260118
  Serious: No
  Sender: JOHNSON AND JOHNSON
  Company Number: US-JNJFOC-20251206403

PATIENT
  Age: 77 Year
  Sex: Male

DRUGS (4)
  1. TECVAYLI [Suspect]
     Active Substance: TECLISTAMAB-CQYV
     Indication: Plasma cell myeloma
  2. TECVAYLI [Suspect]
     Active Substance: TECLISTAMAB-CQYV
  3. TECVAYLI [Suspect]
     Active Substance: TECLISTAMAB-CQYV
  4. TECVAYLI [Suspect]
     Active Substance: TECLISTAMAB-CQYV

REACTIONS (2)
  - Cough [Not Recovered/Not Resolved]
  - Nasopharyngitis [Unknown]

NARRATIVE: CASE EVENT DATE: 20251117
